FAERS Safety Report 10429954 (Version 2)
Quarter: 2014Q4

REPORT INFORMATION
  Report Type: Report from Study
  Country: KR (occurrence: KR)
  Receive Date: 20140904
  Receipt Date: 20141030
  Transmission Date: 20150528
  Serious: Yes (Hospitalization)
  Sender: FDA-Public Use
  Company Number: KR-SA-2014SA117035

PATIENT
  Age: 69 Year
  Sex: Male
  Weight: 87 kg

DRUGS (2)
  1. LANTUS [Suspect]
     Active Substance: INSULIN GLARGINE
     Indication: DIABETES MELLITUS
     Dosage: DOSE:20 UNIT(S)
     Route: 058
     Dates: start: 20140819
  2. APIDRA [Suspect]
     Active Substance: INSULIN GLULISINE
     Indication: DIABETES MELLITUS
     Dosage: DOSE:10 UNIT(S)
     Route: 058
     Dates: start: 20140819

REACTIONS (1)
  - Neutrophil count decreased [Unknown]

NARRATIVE: CASE EVENT DATE: 201408
